FAERS Safety Report 9320648 (Version 1)
Quarter: 2013Q2

REPORT INFORMATION
  Report Type: Spontaneous
  Country: DE (occurrence: DE)
  Receive Date: 20130531
  Receipt Date: 20130531
  Transmission Date: 20140414
  Serious: Yes (Hospitalization)
  Sender: FDA-Public Use
  Company Number: DE-BIOGENIDEC-2013BI047289

PATIENT
  Age: 45 Year
  Sex: Female

DRUGS (2)
  1. AVONEX [Suspect]
     Indication: MULTIPLE SCLEROSIS
     Route: 030
     Dates: start: 20090901
  2. IBUPROFEN [Concomitant]
     Indication: PROPHYLAXIS

REACTIONS (2)
  - Cholelithiasis [Recovered/Resolved]
  - Intervertebral disc protrusion [Not Recovered/Not Resolved]
